FAERS Safety Report 10038804 (Version 2)
Quarter: 2014Q1

REPORT INFORMATION
  Report Type: Spontaneous
  Country: US (occurrence: US)
  Receive Date: 20140326
  Receipt Date: 20140326
  Transmission Date: 20141002
  Serious: Yes (Hospitalization, Other)
  Sender: FDA-Public Use
  Company Number: US-009507513-0811USA03167

PATIENT
  Sex: Female

DRUGS (1)
  1. FOSAMAX [Suspect]
     Indication: OSTEOPOROSIS
     Dosage: 70 MG, QW
     Route: 048
     Dates: start: 20020118, end: 20080115

REACTIONS (39)
  - Myocardial infarction [Unknown]
  - Syncope [Unknown]
  - Arthropathy [Unknown]
  - Skin cancer [Unknown]
  - Anxiety disorder [Unknown]
  - Blood disorder [Unknown]
  - Osteomyelitis [Unknown]
  - Jaw fracture [Unknown]
  - Bone density decreased [Unknown]
  - Adjustment disorder with depressed mood [Unknown]
  - Convulsion [Unknown]
  - Depression [Unknown]
  - Chest pain [Unknown]
  - Mammoplasty [Not Recovered/Not Resolved]
  - Osteonecrosis of jaw [Unknown]
  - Temporomandibular joint syndrome [Unknown]
  - Fungal infection [Unknown]
  - Bone loss [Unknown]
  - Fistula [Unknown]
  - Adverse drug reaction [Unknown]
  - Upper limb fracture [Unknown]
  - Depression [Not Recovered/Not Resolved]
  - Iron deficiency anaemia [Unknown]
  - Diverticulum [Unknown]
  - Large intestine polyp [Unknown]
  - Haemorrhoids [Unknown]
  - Post procedural complication [Unknown]
  - Tooth abscess [Unknown]
  - Migraine [Unknown]
  - Carotid artery stenosis [Unknown]
  - Chronic sinusitis [Not Recovered/Not Resolved]
  - Fall [Not Recovered/Not Resolved]
  - Poor quality sleep [Unknown]
  - Fall [Unknown]
  - Breast malformation [Unknown]
  - Orthostatic hypotension [Unknown]
  - Vestibular ataxia [Unknown]
  - Back pain [Not Recovered/Not Resolved]
  - Constipation [Unknown]
